FAERS Safety Report 7638572-6 (Version None)
Quarter: 2011Q3

REPORT INFORMATION
  Report Type: 
  Country: None (occurrence: None)
  Receive Date: 20110720
  Receipt Date: 20110705
  Transmission Date: 20111222
  Serious: Yes (Other)
  Sender: FDA-Public Use
  Company Number: GRT 2011-12729

PATIENT
  Age: 8 Year
  Sex: Female

DRUGS (6)
  1. LIDODERM [Suspect]
     Indication: POST HERPETIC NEURALGIA
     Dosage: 1 PATCH A DAY
     Dates: start: 20110614, end: 20110615
  2. CAPSAICIN [Concomitant]
  3. OTHER THERAPEUTIC PRODUCTS [Concomitant]
  4. AZITHROMYIN [Concomitant]
  5. KEPPRA [Concomitant]
  6. MELATONIN [Concomitant]

REACTIONS (1)
  - URINARY RETENTION [None]
